FAERS Safety Report 14407010 (Version 5)
Quarter: 2018Q3

REPORT INFORMATION
  Report Type: Spontaneous
  Country: US (occurrence: US)
  Receive Date: 20180118
  Receipt Date: 20180727
  Transmission Date: 20181010
  Serious: Yes (Hospitalization, Other)
  Sender: FDA-Public Use
  Company Number: US-009507513-1801USA002951

PATIENT
  Sex: Male

DRUGS (2)
  1. BELSOMRA [Suspect]
     Active Substance: SUVOREXANT
     Dosage: 20 MG, UNK
     Route: 048
  2. BELSOMRA [Suspect]
     Active Substance: SUVOREXANT
     Dosage: 10 MG DAILY
     Route: 048

REACTIONS (7)
  - Drug effect increased [Recovered/Resolved]
  - Drug dose omission [Unknown]
  - Adverse event [Unknown]
  - Gait disturbance [Unknown]
  - Knee arthroplasty [Recovering/Resolving]
  - Abnormal behaviour [Unknown]
  - Disorientation [Recovered/Resolved]

NARRATIVE: CASE EVENT DATE: 2018
